FAERS Safety Report 24187533 (Version 2)
Quarter: 2024Q3

REPORT INFORMATION
  Report Type: Spontaneous
  Country: US (occurrence: US)
  Receive Date: 20240808
  Receipt Date: 20240913
  Transmission Date: 20241017
  Serious: Yes (Hospitalization)
  Sender: TEVA
  Company Number: US-TEVA-VS-3228185

PATIENT
  Sex: Male

DRUGS (1)
  1. ESTRADIOL VALERATE [Suspect]
     Active Substance: ESTRADIOL VALERATE
     Indication: Transgender hormonal therapy
     Route: 065

REACTIONS (1)
  - Phyllodes tumour [Recovered/Resolved]
